FAERS Safety Report 11855219 (Version 1)
Quarter: 2015Q4

REPORT INFORMATION
  Report Type: Spontaneous
  Country: US (occurrence: US)
  Receive Date: 20151221
  Receipt Date: 20151221
  Transmission Date: 20160305
  Serious: No
  Sender: FDA-Public Use
  Company Number: US-TEVA-549051USA

PATIENT
  Sex: Female

DRUGS (2)
  1. ALCOHOL. [Interacting]
     Active Substance: ALCOHOL
     Route: 048
  2. METRONIDAZOLE. [Suspect]
     Active Substance: METRONIDAZOLE
     Indication: TRICHOMONIASIS
     Dosage: 1000 MILLIGRAM DAILY;
     Route: 048
     Dates: start: 20150115, end: 20150116

REACTIONS (7)
  - Blood alcohol increased [Unknown]
  - Malaise [Unknown]
  - Nausea [Unknown]
  - Road traffic accident [Unknown]
  - Alcohol use [Unknown]
  - Somnolence [Unknown]
  - Alcohol interaction [Unknown]
